FAERS Safety Report 12653151 (Version 1)
Quarter: 2016Q3

REPORT INFORMATION
  Report Type: Report from Study
  Country: DE (occurrence: DE)
  Receive Date: 20160815
  Receipt Date: 20160815
  Transmission Date: 20161109
  Serious: Yes (Hospitalization)
  Sender: FDA-Public Use
  Company Number: DE-ABBVIE-16K-062-1697653-00

PATIENT
  Sex: Female

DRUGS (4)
  1. MTX [Suspect]
     Active Substance: METHOTREXATE SODIUM
     Indication: RHEUMATOID ARTHRITIS
     Route: 065
     Dates: start: 2014, end: 2015
  2. HUMIRA [Suspect]
     Active Substance: ADALIMUMAB
     Indication: RHEUMATOID ARTHRITIS
     Route: 058
     Dates: start: 201404, end: 201504
  3. ROACTEMRA [Suspect]
     Active Substance: TOCILIZUMAB
     Indication: RHEUMATOID ARTHRITIS
     Route: 065
     Dates: start: 201504
  4. MTX [Suspect]
     Active Substance: METHOTREXATE SODIUM
     Route: 065
     Dates: start: 2015

REACTIONS (1)
  - Bursitis [Unknown]

NARRATIVE: CASE EVENT DATE: 20150707
